FAERS Safety Report 24708744 (Version 1)
Quarter: 2024Q4

REPORT INFORMATION
  Report Type: Spontaneous
  Country: JP (occurrence: JP)
  Receive Date: 20241207
  Receipt Date: 20241207
  Transmission Date: 20250115
  Serious: Yes (Other)
  Sender: IPSEN BIOPHARMACEUTICALS, INC.
  Company Number: JP-SERVIER-S24015846

PATIENT
  Sex: Male

DRUGS (1)
  1. ONIVYDE [Suspect]
     Active Substance: IRINOTECAN HYDROCHLORIDE
     Indication: Product used for unknown indication
     Dosage: UNK
     Route: 065
     Dates: end: 2024

REACTIONS (2)
  - Metastases to bone [Unknown]
  - Physical deconditioning [Unknown]

NARRATIVE: CASE EVENT DATE: 20240101
